FAERS Safety Report 21310160 (Version 1)
Quarter: 2022Q3

REPORT INFORMATION
  Report Type: Spontaneous
  Country: IT (occurrence: IT)
  Receive Date: 20220909
  Receipt Date: 20220909
  Transmission Date: 20221027
  Serious: Yes (Other)
  Sender: FDA-Public Use
  Company Number: IT-SA-SAC20220902001041

PATIENT
  Sex: Female

DRUGS (1)
  1. ALGLUCOSIDASE ALFA [Suspect]
     Active Substance: ALGLUCOSIDASE ALFA
     Indication: Glycogen storage disease type II
     Route: 065
     Dates: start: 2005, end: 2020

REACTIONS (14)
  - Muscle hypertrophy [Unknown]
  - Asthenia [Unknown]
  - Restrictive pulmonary disease [Unknown]
  - Urinary incontinence [Unknown]
  - Winged scapula [Unknown]
  - Scoliosis [Unknown]
  - COVID-19 [Unknown]
  - Muscular weakness [Unknown]
  - Gait disturbance [Unknown]
  - Dyspnoea [Unknown]
  - Dysphagia [Unknown]
  - Weight decreased [Unknown]
  - Headache [Unknown]
  - Fatigue [Unknown]
